FAERS Safety Report 9133077 (Version 1)
Quarter: 2013Q1

REPORT INFORMATION
  Report Type: Spontaneous
  Country: JP (occurrence: JP)
  Receive Date: 20130301
  Receipt Date: 20130301
  Transmission Date: 20140127
  Serious: Yes (Hospitalization)
  Sender: FDA-Public Use
  Company Number: JP-ASTRAZENECA-2013SE12369

PATIENT
  Age: 63 Year
  Sex: Female

DRUGS (2)
  1. ARIMIDEX [Suspect]
     Indication: BREAST CANCER
     Route: 048
  2. NOLVADEX [Suspect]
     Indication: BREAST CANCER
     Dosage: DOSE UNKNOWN
     Route: 048

REACTIONS (2)
  - Radiation pneumonitis [Recovered/Resolved]
  - Musculoskeletal stiffness [Unknown]
